APPROVED DRUG PRODUCT: DIATRIZOATE-60
Active Ingredient: DIATRIZOATE MEGLUMINE; DIATRIZOATE SODIUM
Strength: 52%;8%
Dosage Form/Route: INJECTABLE;INJECTION
Application: A088166 | Product #001
Applicant: INTERNATIONAL MEDICATION SYSTEMS LTD
Approved: Jun 17, 1983 | RLD: No | RS: No | Type: DISCN